FAERS Safety Report 6313520-X (Version None)
Quarter: 2009Q3

REPORT INFORMATION
  Report Type: 
  Country: None (occurrence: None)
  Receive Date: 20090818
  Receipt Date: 20090806
  Transmission Date: 20100115
  Serious: Yes (Hospitalization)
  Sender: FDA-Public Use
  Company Number: US-ELI_LILLY_AND_COMPANY-US200907001686

PATIENT
  Sex: Female
  Weight: 50.476 kg

DRUGS (12)
  1. PEMETREXED [Suspect]
     Indication: NON-SMALL CELL LUNG CANCER
     Dosage: 500 MG/M2, OTHER
     Route: 042
     Dates: start: 20090521
  2. CISPLATIN [Suspect]
     Indication: NON-SMALL CELL LUNG CANCER
     Dosage: 75 MG/M2, OTHER
     Route: 042
     Dates: start: 20090521
  3. RADIATION [Suspect]
     Indication: NON-SMALL CELL LUNG CANCER
     Dosage: 180 D/F, DAILY (1/D)
     Dates: start: 20090521
  4. FOLIC ACID [Concomitant]
     Indication: VITAMIN SUPPLEMENTATION
     Dates: start: 20090505
  5. VITAMIN B-12 [Concomitant]
     Indication: VITAMIN SUPPLEMENTATION
     Dates: start: 20090505
  6. DEXAMETHASONE [Concomitant]
     Indication: HYPERSENSITIVITY
     Dosage: UNK, UNK
     Dates: start: 20090520
  7. FERROUS SULFATE TAB [Concomitant]
     Indication: MINERAL SUPPLEMENTATION
     Dates: start: 20090411
  8. PRILOSEC [Concomitant]
     Indication: GASTROOESOPHAGEAL REFLUX DISEASE
     Dates: start: 20090411
  9. PERCOCET [Concomitant]
     Indication: PAIN
     Dates: start: 20090411
  10. PALONOSETRON HYDROCHLORIDE [Concomitant]
     Indication: NAUSEA
     Dosage: UNK, UNK
     Dates: start: 20090419
  11. COMPAZINE [Concomitant]
     Indication: NAUSEA
     Dosage: UNK, UNK
     Dates: start: 20090518
  12. METOCLOPRAMIDE HYDROCHLORIDE [Concomitant]
     Indication: NAUSEA
     Dosage: UNK, UNK
     Dates: start: 20090629

REACTIONS (4)
  - DEHYDRATION [None]
  - HYPOTENSION [None]
  - ORTHOSTATIC HYPOTENSION [None]
  - VOMITING [None]
